FAERS Safety Report 7001208-1 (Version None)
Quarter: 2010Q3

REPORT INFORMATION
  Report Type: 
  Country: None (occurrence: None)
  Receive Date: 20100920
  Receipt Date: 20090728
  Transmission Date: 20110219
  Serious: Yes (Other)
  Sender: FDA-Public Use
  Company Number: US-ASTRAZENECA-2009SE06387

PATIENT
  Age: 40 Year
  Sex: Male

DRUGS (2)
  1. SEROQUEL [Suspect]
     Route: 048
     Dates: start: 20090501, end: 20090701
  2. SEROQUEL [Suspect]
     Route: 048
     Dates: start: 20090701

REACTIONS (2)
  - CONVULSION [None]
  - HYPOTENSION [None]
